FAERS Safety Report 4280361-7 (Version None)
Quarter: 2004Q1

REPORT INFORMATION
  Report Type: 
  Country: None (occurrence: None)
  Receive Date: 20040127
  Receipt Date: 20040112
  Transmission Date: 20041129
  Serious: Yes (Death, Hospitalization)
  Sender: FDA-Public Use
  Company Number: S03-UKI-05243-01

PATIENT
  Age: 83 Year
  Sex: Female

DRUGS (8)
  1. CIPRALEX         (ESCITALOPRAM) [Suspect]
     Indication: DEPRESSION
     Dosage: 20 MG QD PO
     Route: 048
     Dates: start: 20031114, end: 20031118
  2. DIGOXIN [Concomitant]
  3. WARFARIN SODIUM [Concomitant]
  4. PARACETAMOL [Concomitant]
  5. TRAMADOL HCL [Concomitant]
  6. FRUSEMIDE [Concomitant]
  7. CANDESARTAN [Concomitant]
  8. LANSOPRAZOLE [Concomitant]

REACTIONS (2)
  - MYOCARDIAL INFARCTION [None]
  - TRANSIENT ISCHAEMIC ATTACK [None]
